FAERS Safety Report 5828177-1 (Version None)
Quarter: 2008Q3

REPORT INFORMATION
  Report Type: 
  Country: None (occurrence: None)
  Receive Date: 20080729
  Receipt Date: 20080722
  Transmission Date: 20090109
  Serious: Yes (Death, Hospitalization, Other)
  Sender: FDA-Public Use
  Company Number: 163-20785-08040964

PATIENT
  Age: 41 Year
  Sex: Male
  Weight: 73.4827 kg

DRUGS (9)
  1. THALOMID [Suspect]
     Indication: ERYTHEMA NODOSUM LEPROSUM
     Dosage: 300 MG, 3 IN 1 D, ORAL, 100 MG, 1 IN 1 D, ORAL
     Route: 048
     Dates: start: 20080301, end: 20080330
  2. THALOMID [Suspect]
     Indication: ERYTHEMA NODOSUM LEPROSUM
     Dosage: 300 MG, 3 IN 1 D, ORAL, 100 MG, 1 IN 1 D, ORAL
     Route: 048
     Dates: start: 20080213
  3. CLOFACEMINE (CLOFAZIMINE) [Concomitant]
  4. DAPSONE [Concomitant]
  5. PREDNISONE [Concomitant]
  6. FOLATE (FOLIC ACID) [Concomitant]
  7. MULTIVITAMIN [Concomitant]
  8. LASIX [Concomitant]
  9. SPIRONOLACTONE [Concomitant]

REACTIONS (3)
  - HEPATIC FAILURE [None]
  - PANCREATITIS ACUTE [None]
  - PNEUMONIA [None]
